FAERS Safety Report 9022475 (Version 2)
Quarter: 2013Q1

REPORT INFORMATION
  Report Type: Report from Study
  Country: US (occurrence: US)
  Receive Date: 20130118
  Receipt Date: 20130222
  Transmission Date: 20140127
  Serious: Yes (Hospitalization, Other)
  Sender: FDA-Public Use
  Company Number: US-TEVA-380927USA

PATIENT
  Age: 9 None
  Sex: Female

DRUGS (24)
  1. VINCRISTINE [Suspect]
     Indication: ACUTE LYMPHOCYTIC LEUKAEMIA
     Route: 042
     Dates: start: 20121128
  2. DASATINIB [Suspect]
     Indication: ACUTE LYMPHOCYTIC LEUKAEMIA
     Dosage: 45 MILLIGRAM DAILY;
     Route: 048
     Dates: start: 20121120
  3. IFOSFAMIDE [Suspect]
     Indication: ACUTE LYMPHOCYTIC LEUKAEMIA
     Route: 042
     Dates: start: 20121128, end: 20121130
  4. ETOPOSIDE [Suspect]
     Indication: ACUTE LYMPHOCYTIC LEUKAEMIA
     Dosage: 180 MILLIGRAM DAILY;
     Route: 042
     Dates: start: 20121221, end: 20121223
  5. METHOTREXATE [Suspect]
     Indication: ACUTE LYMPHOCYTIC LEUKAEMIA
     Route: 037
     Dates: start: 20121127
  6. CYTARABINE [Suspect]
     Indication: ACUTE LYMPHOCYTIC LEUKAEMIA
     Route: 042
     Dates: start: 20121219, end: 20121220
  7. DAUNORUBICIN [Suspect]
     Indication: ACUTE LYMPHOCYTIC LEUKAEMIA
     Route: 042
     Dates: start: 20121201, end: 20121201
  8. PEGASPARGASE [Suspect]
     Indication: ACUTE LYMPHOCYTIC LEUKAEMIA
     Dosage: 1 DOSAGE FORM
     Route: 042
     Dates: start: 20121202, end: 20121203
  9. ELSPAR [Suspect]
     Indication: ACUTE LYMPHOCYTIC LEUKAEMIA
     Dosage: 1 DOSAGE FORM
     Route: 042
     Dates: start: 20121202, end: 20121202
  10. DEXAMETHASONE [Suspect]
     Indication: ACUTE LYMPHOCYTIC LEUKAEMIA
     Dosage: 18 MILLIGRAM DAILY;
     Route: 048
     Dates: start: 20121127, end: 20121223
  11. G-CSF [Suspect]
     Indication: ACUTE LYMPHOCYTIC LEUKAEMIA
     Dates: start: 20121224
  12. HYDROCORTISONE [Suspect]
     Indication: ACUTE LYMPHOCYTIC LEUKAEMIA
     Route: 037
     Dates: start: 20121224
  13. DIPHENHYDRAMINE [Concomitant]
     Dates: start: 20121127, end: 20121204
  14. ONDANSETRON [Concomitant]
     Dates: start: 20121010, end: 20121204
  15. SODIUM CHLORIDE [Concomitant]
     Dates: start: 20120803
  16. LORATADINE [Concomitant]
     Dates: start: 20121127, end: 20121204
  17. CHLORHEXIDINE GLUCONATE AND BENZYDAMINE HCL [Concomitant]
     Dates: start: 20121127, end: 20121204
  18. FAMOTIDINE [Concomitant]
     Dates: start: 20121127, end: 20121204
  19. LEUCOVORIN [Concomitant]
     Dates: start: 20121129, end: 20121201
  20. EPIPEN [Concomitant]
     Dates: start: 20121202, end: 20121202
  21. LASIX [Concomitant]
     Dates: start: 20121129, end: 20121129
  22. SULFAMETHOXAZOLE W/TRIMETHOPRIM [Concomitant]
     Dates: start: 20121202, end: 20121204
  23. ACETAMINOPHEN [Concomitant]
  24. DEXTROSE [Concomitant]

REACTIONS (9)
  - Febrile neutropenia [Recovered/Resolved]
  - Dehydration [Recovered/Resolved with Sequelae]
  - Hyponatraemia [Recovered/Resolved]
  - Mucosal inflammation [Recovered/Resolved]
  - Pneumonia [Recovered/Resolved]
  - Diarrhoea [Not Recovered/Not Resolved]
  - Thrombocytopenia [Not Recovered/Not Resolved]
  - Enterocolitis [Not Recovered/Not Resolved]
  - Hypokalaemia [Not Recovered/Not Resolved]
